FAERS Safety Report 6136583-3 (Version None)
Quarter: 2009Q1

REPORT INFORMATION
  Report Type: 
  Country: None (occurrence: None)
  Receive Date: 20090330
  Receipt Date: 20090318
  Transmission Date: 20090719
  Serious: Yes (Disabling, Other)
  Sender: FDA-Public Use
  Company Number: GR-PFIZER INC-2008076462

PATIENT

DRUGS (1)
  1. SUTENT [Suspect]
     Route: 048
     Dates: start: 20080101

REACTIONS (2)
  - DERMATITIS [None]
  - STOMATITIS [None]
